FAERS Safety Report 15927619 (Version 3)
Quarter: 2020Q1

REPORT INFORMATION
  Report Type: Spontaneous
  Country: US (occurrence: US)
  Receive Date: 20190205
  Receipt Date: 20200129
  Transmission Date: 20200409
  Serious: No
  Sender: FDA-Public Use
  Company Number: US-ALLERGAN-1858524US

PATIENT
  Sex: Female

DRUGS (3)
  1. JUVEDERM VOLBELLA XC [Concomitant]
     Indication: SKIN WRINKLING
  2. JUVEDERM VOLBELLA XC [Concomitant]
     Indication: SKIN WRINKLING
     Dosage: 0.55 ML, SINGLE
     Route: 065
     Dates: start: 20180918, end: 20180918
  3. BOTOX [Suspect]
     Active Substance: ONABOTULINUMTOXINA
     Indication: SKIN WRINKLING
     Dosage: 4 UNITS, SINGLE
     Route: 030
     Dates: start: 20180918, end: 20180918

REACTIONS (2)
  - Drug ineffective for unapproved indication [Unknown]
  - Off label use [Unknown]
